FAERS Safety Report 7694003-1 (Version None)
Quarter: 2011Q3

REPORT INFORMATION
  Report Type: 
  Country: None (occurrence: None)
  Receive Date: 20110819
  Receipt Date: 20110808
  Transmission Date: 20111222
  Serious: Yes (Disabling, Other)
  Sender: FDA-Public Use
  Company Number: FR-UCBSA-033304

PATIENT
  Sex: Female
  Weight: 87.7 kg

DRUGS (4)
  1. CELEBREX [Concomitant]
     Indication: OSTEOARTHRITIS
     Route: 048
     Dates: start: 20100101
  2. KEPPRA [Suspect]
     Indication: EPILEPSY
     Route: 048
     Dates: start: 20080101
  3. LAMICTAL [Concomitant]
     Indication: EPILEPSY
     Dosage: 100 MG + 200 MG
     Route: 048
     Dates: start: 19950101
  4. TOPIRAMATE [Concomitant]
     Indication: EPILEPSY
     Dosage: 50 MG + 100 MG
     Route: 048
     Dates: start: 19990101

REACTIONS (3)
  - TOOTH LOSS [None]
  - PERIODONTAL DISEASE [None]
  - GINGIVAL BLEEDING [None]
